FAERS Safety Report 16679508 (Version 1)
Quarter: 2019Q3

REPORT INFORMATION
  Report Type: Spontaneous
  Country: CN (occurrence: CN)
  Receive Date: 20190807
  Receipt Date: 20190807
  Transmission Date: 20191004
  Serious: Yes (Life-Threatening)
  Sender: FDA-Public Use
  Company Number: PHHY2019CN182067

PATIENT
  Sex: Female

DRUGS (1)
  1. ZYKADIA [Suspect]
     Active Substance: CERITINIB
     Indication: LYMPHADENOPATHY
     Dosage: 3 OT, UNK
     Route: 048
     Dates: start: 20190724

REACTIONS (5)
  - Feeling abnormal [Unknown]
  - Hyperhidrosis [Unknown]
  - Balance disorder [Unknown]
  - Product use in unapproved indication [Unknown]
  - Asthenia [Unknown]
